FAERS Safety Report 9115223 (Version 1)
Quarter: 2013Q1

REPORT INFORMATION
  Report Type: Spontaneous
  Country: IT (occurrence: None)
  Receive Date: 20130129
  Receipt Date: 20130129
  Transmission Date: 20140127
  Serious: No
  Sender: FDA-Public Use
  Company Number: DSM-2013-00098

PATIENT
  Age: 39 Year
  Sex: Male

DRUGS (1)
  1. BIVIS (OLMESARTAN MEDOXOMIL, AMLODIPINE BESILATE) (TABLET) (OLMESARTAN MEDOXOMIL, AMLODIPINE BESILATE) [Suspect]
     Indication: HYPERTENSION
     Route: 048
     Dates: start: 20121018, end: 20121023

REACTIONS (3)
  - Headache [None]
  - Hypertension [None]
  - Drug ineffective [None]
